FAERS Safety Report 7198043-0 (Version None)
Quarter: 2010Q4

REPORT INFORMATION
  Report Type: 
  Country: None (occurrence: None)
  Receive Date: 20101227
  Receipt Date: 20101221
  Transmission Date: 20110411
  Serious: Yes (Hospitalization)
  Sender: FDA-Public Use
  Company Number: IT-SANOFI-AVENTIS-2010SA076744

PATIENT
  Age: 85 Year
  Sex: Male

DRUGS (5)
  1. PLAVIX [Suspect]
     Route: 048
     Dates: start: 20100422, end: 20101212
  2. CARDIOASPIRINA [Suspect]
     Route: 048
     Dates: start: 20100402, end: 20101211
  3. ALTIAZEM [Concomitant]
     Dosage: DOSE:1 UNIT(S)
     Route: 048
  4. RANIDIL [Concomitant]
     Dosage: DOSE:1 UNIT(S)
     Route: 048
  5. XANAX [Concomitant]
     Dosage: DOSE:2 UNIT(S)
     Route: 048

REACTIONS (3)
  - ANAEMIA [None]
  - DUODENAL ULCER HAEMORRHAGE [None]
  - HYPOTENSION [None]
